FAERS Safety Report 20772698 (Version 1)
Quarter: 2022Q2

REPORT INFORMATION
  Report Type: Spontaneous
  Country: RU (occurrence: None)
  Receive Date: 20220502
  Receipt Date: 20220502
  Transmission Date: 20220721
  Serious: Yes (Hospitalization, Other)
  Sender: FDA-Public Use
  Company Number: RU-VistaPharm, Inc.-VER202204-000408

PATIENT
  Age: 25 Year

DRUGS (3)
  1. METHADONE [Suspect]
     Active Substance: METHADONE HYDROCHLORIDE
     Indication: Substance use
     Dosage: 2 G
     Route: 065
  2. 1,4-BUTANEDIOL [Suspect]
     Active Substance: 1,4-BUTANEDIOL
     Indication: Substance use
     Dosage: 100 ML
     Route: 065
  3. .ALPHA.-PYRROLIDINOPENTIOPHENONE [Suspect]
     Active Substance: .ALPHA.-PYRROLIDINOPENTIOPHENONE
     Indication: Substance use
     Dosage: UNKNOWN
     Route: 065

REACTIONS (9)
  - Brain oedema [Unknown]
  - Lactic acidosis [Unknown]
  - Acid-base balance disorder mixed [Unknown]
  - Hypoxic-ischaemic encephalopathy [Unknown]
  - Poisoning [Unknown]
  - Acute respiratory failure [Unknown]
  - Coma [Unknown]
  - Seizure [Unknown]
  - Pneumonia [Unknown]
